FAERS Safety Report 16227666 (Version 1)
Quarter: 2019Q2

REPORT INFORMATION
  Report Type: Spontaneous
  Country: US (occurrence: US)
  Receive Date: 20190423
  Receipt Date: 20190423
  Transmission Date: 20190711
  Serious: No
  Sender: FDA-Public Use
  Company Number: US-PFIZER INC-2019162599

PATIENT
  Age: 71 Year
  Sex: Female
  Weight: 81.19 kg

DRUGS (2)
  1. ALPRAZOLAM. [Suspect]
     Active Substance: ALPRAZOLAM
     Indication: PANIC ATTACK
     Dosage: 0.5 DF, 2X/DAY (1MG HALF TABLET TWICE DAILY)
     Route: 048
  2. ALPRAZOLAM. [Suspect]
     Active Substance: ALPRAZOLAM
     Indication: ANXIETY
     Dosage: UNK (WHOLE TABLET)

REACTIONS (3)
  - Somnolence [Unknown]
  - Drug ineffective [Unknown]
  - Feeling abnormal [Unknown]
